FAERS Safety Report 17305958 (Version 2)
Quarter: 2020Q3

REPORT INFORMATION
  Report Type: Spontaneous
  Country: JP (occurrence: JP)
  Receive Date: 20200123
  Receipt Date: 20200806
  Transmission Date: 20201102
  Serious: Yes (Other)
  Sender: FDA-Public Use
  Company Number: JP-ASTELLAS-2020JP000916

PATIENT
  Age: 74 Year
  Sex: Male

DRUGS (1)
  1. BETANIS [Suspect]
     Active Substance: MIRABEGRON
     Indication: NEUROGENIC BLADDER
     Route: 048
     Dates: start: 20180302, end: 20191204

REACTIONS (2)
  - Carcinoembryonic antigen increased [Recovered/Resolved]
  - Carbohydrate antigen 19-9 increased [Recovered/Resolved]

NARRATIVE: CASE EVENT DATE: 20180516
